FAERS Safety Report 24089486 (Version 1)
Quarter: 2024Q3

REPORT INFORMATION
  Report Type: Spontaneous
  Country: JP (occurrence: JP)
  Receive Date: 20240715
  Receipt Date: 20240715
  Transmission Date: 20241017
  Serious: No
  Sender: PIERRE FABRE MEDICAMENT
  Company Number: JP-PFM-2021-09232

PATIENT
  Age: 4 Month
  Sex: Female

DRUGS (4)
  1. PROPRANOLOL HYDROCHLORIDE [Suspect]
     Active Substance: PROPRANOLOL HYDROCHLORIDE
     Indication: Infantile haemangioma
     Dosage: 2 ML, (1ML/12 HOURS)
     Route: 048
     Dates: start: 20190603, end: 20190604
  2. PROPRANOLOL HYDROCHLORIDE [Suspect]
     Active Substance: PROPRANOLOL HYDROCHLORIDE
     Dosage: 4ML, (2ML/12 HOURS)
     Route: 048
     Dates: start: 20190605, end: 20190606
  3. PROPRANOLOL HYDROCHLORIDE [Suspect]
     Active Substance: PROPRANOLOL HYDROCHLORIDE
     Dosage: 6 ML, (3ML/12 HOURS)
     Route: 048
     Dates: start: 20190607, end: 20191031
  4. PROPRANOLOL HYDROCHLORIDE [Suspect]
     Active Substance: PROPRANOLOL HYDROCHLORIDE
     Dosage: 6 ML, (3ML/12 HOURS)
     Route: 048
     Dates: start: 20191107, end: 20200312

REACTIONS (1)
  - Upper respiratory tract inflammation [Recovered/Resolved]

NARRATIVE: CASE EVENT DATE: 20191031
